FAERS Safety Report 11532728 (Version 3)
Quarter: 2015Q4

REPORT INFORMATION
  Report Type: Spontaneous
  Country: CH (occurrence: AU)
  Receive Date: 20150921
  Receipt Date: 20151102
  Transmission Date: 20160304
  Serious: Yes (Hospitalization)
  Sender: FDA-Public Use
  Company Number: CH-LPDUSPRD-20150702

PATIENT
  Age: 58 Year
  Sex: Male
  Weight: 104.7 kg

DRUGS (5)
  1. FERINJECT [Suspect]
     Active Substance: FERRIC CARBOXYMALTOSE
     Dosage: DOSE NOT PROVIDED
     Route: 041
     Dates: start: 20150825, end: 20150825
  2. PANADOL [Concomitant]
     Active Substance: ACETAMINOPHEN
     Dosage: DOSE NOT PROVIDED
     Route: 065
  3. FUNGILIN [Concomitant]
     Active Substance: AMPHOTERICIN B
     Dosage: DOSE UNKNOWN
     Route: 065
  4. FLUCLOX [Concomitant]
     Dosage: 500 TDS
     Route: 065
  5. NEXIUM [Concomitant]
     Active Substance: ESOMEPRAZOLE MAGNESIUM
     Dosage: DOSE UNKNOWN
     Route: 065

REACTIONS (9)
  - Hypotension [Recovered/Resolved]
  - Pulse absent [Recovered/Resolved]
  - Loss of consciousness [Recovered/Resolved]
  - Urinary incontinence [Recovered/Resolved]
  - Dyspnoea [Recovered/Resolved]
  - Tachycardia [Recovered/Resolved]
  - Arrhythmia [Recovered/Resolved]
  - Syncope [Recovered/Resolved]
  - Respiratory arrest [Recovered/Resolved]

NARRATIVE: CASE EVENT DATE: 20150901
